FAERS Safety Report 24111204 (Version 3)
Quarter: 2025Q2

REPORT INFORMATION
  Report Type: Report from Study
  Country: CO (occurrence: CO)
  Receive Date: 20240718
  Receipt Date: 20250423
  Transmission Date: 20250716
  Serious: Yes (Death, Hospitalization, Other)
  Sender: GLAXOSMITHKLINE
  Company Number: CO-GLAXOSMITHKLINE-CO2024AMR014756

PATIENT

DRUGS (3)
  1. NIRAPARIB [Suspect]
     Active Substance: NIRAPARIB
     Indication: Ovarian cancer
     Dosage: 200 MG, QD
     Dates: start: 20240129
  2. NIRAPARIB [Suspect]
     Active Substance: NIRAPARIB
     Dosage: 100 MG, QD (MONDAY TO FRIDAY)
  3. NIRAPARIB [Suspect]
     Active Substance: NIRAPARIB
     Dosage: 100 MG, QD
     Dates: end: 20250114

REACTIONS (25)
  - Death [Fatal]
  - Diarrhoea [Recovered/Resolved]
  - Dyspnoea [Recovered/Resolved]
  - Hospitalisation [Recovered/Resolved]
  - General physical health deterioration [Recovering/Resolving]
  - Blood pressure decreased [Recovered/Resolved]
  - Malignant neoplasm progression [Not Recovered/Not Resolved]
  - Blood pressure increased [Not Recovered/Not Resolved]
  - Constipation [Not Recovered/Not Resolved]
  - Taste disorder [Not Recovered/Not Resolved]
  - Carbohydrate antigen 125 increased [Unknown]
  - Weight decreased [Not Recovered/Not Resolved]
  - Depressed mood [Unknown]
  - Blood magnesium increased [Unknown]
  - Blood creatinine increased [Unknown]
  - Decreased appetite [Recovered/Resolved]
  - Agitation [Not Recovered/Not Resolved]
  - Laboratory test abnormal [Recovered/Resolved]
  - Mood altered [Recovered/Resolved]
  - Abdominal pain [Not Recovered/Not Resolved]
  - Anaemia [Not Recovered/Not Resolved]
  - Limb mass [Not Recovered/Not Resolved]
  - Feeling of despair [Recovered/Resolved]
  - Drug ineffective [Not Recovered/Not Resolved]
  - Inappropriate schedule of product administration [Unknown]

NARRATIVE: CASE EVENT DATE: 20240129
